FAERS Safety Report 13117381 (Version 1)
Quarter: 2017Q1

REPORT INFORMATION
  Report Type: Spontaneous
  Country: US (occurrence: US)
  Receive Date: 20170116
  Receipt Date: 20170116
  Transmission Date: 20170428
  Serious: Yes (Death)
  Sender: FDA-Public Use
  Company Number: US-CORDEN PHARMA LATINA S.P.A.-US-2017COR000005

PATIENT
  Age: 51 Year
  Sex: Female

DRUGS (2)
  1. PACLITAXEL. [Suspect]
     Active Substance: PACLITAXEL
     Indication: LUNG ADENOCARCINOMA
     Dosage: WEEKLY
  2. CARBOPLATIN. [Suspect]
     Active Substance: CARBOPLATIN
     Indication: LUNG ADENOCARCINOMA
     Dosage: WEEKLY

REACTIONS (9)
  - Vomiting [Fatal]
  - Pyrexia [Fatal]
  - Nausea [Fatal]
  - Dyspnoea [Fatal]
  - Tachycardia [Fatal]
  - Chest pain [Fatal]
  - Tachypnoea [Fatal]
  - Rales [Fatal]
  - Oesophagobronchial fistula [Fatal]
